FAERS Safety Report 4841504-7 (Version None)
Quarter: 2005Q4

REPORT INFORMATION
  Report Type: 
  Country: None (occurrence: None)
  Receive Date: 20051130
  Receipt Date: 20050810
  Transmission Date: 20060501
  Serious: No
  Sender: FDA-Public Use
  Company Number: US-GLAXOSMITHKLINE-A0569725A

PATIENT
  Age: 37 Year
  Sex: Male

DRUGS (5)
  1. WELLBUTRIN XL [Suspect]
     Indication: DEPRESSION
     Dosage: 300MG PER DAY
     Route: 048
     Dates: start: 20050601, end: 20050808
  2. SOMA [Concomitant]
  3. DILAUDID [Concomitant]
  4. TRANXENE [Concomitant]
  5. LEXAPRO [Concomitant]

REACTIONS (2)
  - IRRITABILITY [None]
  - MOOD SWINGS [None]
